FAERS Safety Report 7538571-9 (Version None)
Quarter: 2011Q2

REPORT INFORMATION
  Report Type: 
  Country: None (occurrence: None)
  Receive Date: 20110610
  Receipt Date: 20110602
  Transmission Date: 20111010
  Serious: No
  Sender: FDA-Public Use
  Company Number: US-BIOGENIDEC-2010BI010739

PATIENT
  Age: 45 Year
  Sex: Female

DRUGS (1)
  1. TYSABRI [Suspect]
     Indication: MULTIPLE SCLEROSIS
     Route: 042
     Dates: start: 20080208

REACTIONS (6)
  - AMNESIA [None]
  - MULTIPLE SCLEROSIS RELAPSE [None]
  - DYSARTHRIA [None]
  - MUSCULAR WEAKNESS [None]
  - PARAESTHESIA [None]
  - OPTIC NEURITIS [None]
